FAERS Safety Report 4282860-0 (Version None)
Quarter: 2004Q1

REPORT INFORMATION
  Report Type: 
  Country: None (occurrence: None)
  Receive Date: 20040130
  Receipt Date: 20030715
  Transmission Date: 20041129
  Serious: No
  Sender: FDA-Public Use
  Company Number: US-BRISTOL-MYERS SQUIBB COMPANY-12326443

PATIENT
  Age: 44 Year
  Sex: Female
  Weight: 63 kg

DRUGS (2)
  1. SERZONE [Suspect]
     Indication: ANXIETY
     Dosage: STARTED SERZONE 200 MG THREE TIMES A DAY, THEN DOSE REDUCED TO 200 MG TWICE DAILY
     Route: 048
     Dates: start: 20020101
  2. LORAZEPAM [Concomitant]

REACTIONS (1)
  - DIARRHOEA [None]
